FAERS Safety Report 25280748 (Version 1)
Quarter: 2025Q2

REPORT INFORMATION
  Report Type: Spontaneous
  Country: TW (occurrence: TW)
  Receive Date: 20250508
  Receipt Date: 20250508
  Transmission Date: 20250717
  Serious: Yes (Life-Threatening, Hospitalization, Other)
  Sender: BRISTOL-MYERS SQUIBB COMPANY
  Company Number: TW-BRISTOL-MYERS SQUIBB COMPANY-2025-064234

PATIENT
  Age: 69 Year
  Sex: Male
  Weight: 77.1 kg

DRUGS (4)
  1. NIVOLUMAB [Suspect]
     Active Substance: NIVOLUMAB
     Indication: Metastatic malignant melanoma
     Route: 042
     Dates: start: 20231115, end: 20240912
  2. NIVOLUMAB [Suspect]
     Active Substance: NIVOLUMAB
     Route: 042
     Dates: start: 20240606
  3. NIVOLUMAB [Suspect]
     Active Substance: NIVOLUMAB
     Route: 042
     Dates: start: 20250327
  4. DICLOFENAC SODIUM [Concomitant]
     Active Substance: DICLOFENAC SODIUM
     Indication: Analgesic therapy
     Dosage: VORTAGEN E.C EVEREST (DICLOFENAC)
     Route: 048
     Dates: start: 20250303, end: 20250305

REACTIONS (17)
  - Rash [Recovering/Resolving]
  - Fungal skin infection [Recovering/Resolving]
  - Pneumonia [Recovering/Resolving]
  - Septic shock [Recovering/Resolving]
  - Stevens-Johnson syndrome [Recovering/Resolving]
  - Thrombotic microangiopathy [Recovering/Resolving]
  - General physical health deterioration [Unknown]
  - Respiratory failure [Unknown]
  - Urinary tract infection [Unknown]
  - Chronic kidney disease [Unknown]
  - Acute kidney injury [Unknown]
  - Prostatic abscess [Unknown]
  - Sinusitis [Unknown]
  - Bacterial translocation [Unknown]
  - Purpura fulminans [Unknown]
  - Paraneoplastic pemphigus [Unknown]
  - Toxic epidermal necrolysis [Recovering/Resolving]

NARRATIVE: CASE EVENT DATE: 20240425
